FAERS Safety Report 6544972-8 (Version None)
Quarter: 2010Q1

REPORT INFORMATION
  Report Type: 
  Country: None (occurrence: None)
  Receive Date: 20100115
  Receipt Date: 20100112
  Transmission Date: 20100710
  Serious: Yes (Other)
  Sender: FDA-Public Use
  Company Number: SP02095

PATIENT
  Age: 55 Year
  Sex: Female
  Weight: 62.5964 kg

DRUGS (7)
  1. OSMOPREP [Suspect]
     Indication: BOWEL PREPARATION
     Dosage: ORAL
     Route: 048
     Dates: start: 20081016, end: 20081016
  2. SERTRALINE HCL [Concomitant]
  3. SYNTHROID [Concomitant]
  4. ACTIVELLA [Concomitant]
  5. ZOLPIDEM [Concomitant]
  6. MELATONIN [Concomitant]
  7. ASPIRIN [Concomitant]

REACTIONS (1)
  - HYPERSENSITIVITY [None]
